FAERS Safety Report 18388171 (Version 3)
Quarter: 2020Q4

REPORT INFORMATION
  Report Type: Report from Study
  Country: None (occurrence: CA)
  Receive Date: 20201015
  Receipt Date: 20201221
  Transmission Date: 20210114
  Serious: Yes (Other)
  Sender: FDA-Public Use
  Company Number: CA-ABBVIE-20K-028-3577138-00

PATIENT
  Age: 35 Year
  Sex: Female
  Weight: 45.4 kg

DRUGS (2)
  1. HUMIRA [Suspect]
     Active Substance: ADALIMUMAB
     Indication: CROHN^S DISEASE
     Route: 058
     Dates: start: 20090608
  2. HUMIRA [Suspect]
     Active Substance: ADALIMUMAB
     Route: 058

REACTIONS (26)
  - Small intestinal obstruction [Unknown]
  - Abdominal pain [Recovering/Resolving]
  - Intestinal anastomosis [Unknown]
  - Anastomotic ulcer [Unknown]
  - Crohn^s disease [Unknown]
  - Large intestinal stenosis [Unknown]
  - Fibrosis [Unknown]
  - Acrochordon [Unknown]
  - Intestinal anastomosis complication [Unknown]
  - Colectomy [Unknown]
  - Impaired work ability [Not Recovered/Not Resolved]
  - Bowel movement irregularity [Unknown]
  - Irritable bowel syndrome [Recovering/Resolving]
  - Abnormal faeces [Unknown]
  - Eating disorder [Unknown]
  - Ileal stenosis [Unknown]
  - Anal stenosis [Unknown]
  - Anal skin tags [Unknown]
  - Nausea [Unknown]
  - Anorectal disorder [Unknown]
  - Abdominal distension [Unknown]
  - Impaired quality of life [Not Recovered/Not Resolved]
  - Diarrhoea [Recovered/Resolved]
  - Therapeutic product effect decreased [Not Recovered/Not Resolved]
  - Small intestinal stenosis [Unknown]
  - Frequent bowel movements [Unknown]

NARRATIVE: CASE EVENT DATE: 20200917
